FAERS Safety Report 5372124-6 (Version None)
Quarter: 2007Q2

REPORT INFORMATION
  Report Type: 
  Country: None (occurrence: None)
  Receive Date: 20070627
  Receipt Date: 20070617
  Transmission Date: 20071010
  Serious: Yes (Death, Hospitalization)
  Sender: FDA-Public Use
  Company Number: EG-SANOFI-SYNTHELABO-A01200705763

PATIENT

DRUGS (4)
  1. GENERIC CLOPIDOGREL NOS [Suspect]
     Indication: STENT PLACEMENT
     Route: 048
     Dates: start: 20070501
  2. GENERIC CLOPIDOGREL NOS [Suspect]
     Indication: MYOCARDIAL ISCHAEMIA
     Route: 048
     Dates: start: 20070501
  3. PLAVIX [Suspect]
     Indication: STENT PLACEMENT
     Route: 048
     Dates: start: 20070501, end: 20070501
  4. PLAVIX [Suspect]
     Indication: MYOCARDIAL ISCHAEMIA
     Route: 048
     Dates: start: 20070501, end: 20070501

REACTIONS (1)
  - THROMBOSIS IN DEVICE [None]
